FAERS Safety Report 18545111 (Version 1)
Quarter: 2020Q4

REPORT INFORMATION
  Report Type: Spontaneous
  Country: TR (occurrence: TR)
  Receive Date: 20201125
  Receipt Date: 20201125
  Transmission Date: 20210114
  Serious: Yes (Death, Life-Threatening, Hospitalization)
  Sender: FDA-Public Use
  Company Number: TR-STRIDES ARCOLAB LIMITED-2020SP014337

PATIENT
  Age: 55 Year
  Sex: Female

DRUGS (4)
  1. PREDNISOLONE. [Suspect]
     Active Substance: PREDNISOLONE
     Indication: RENAL TRANSPLANT
     Dosage: UNK
     Route: 065
  2. LOSARTAN. [Concomitant]
     Active Substance: LOSARTAN
     Indication: HYPERTENSION
     Dosage: 50 MILLIGRAM PER DAY
     Route: 065
  3. TACROLIMUS. [Suspect]
     Active Substance: TACROLIMUS
     Indication: RENAL TRANSPLANT
     Dosage: UNK
     Route: 065
  4. MYCOPHENOLATE MOFETIL. [Suspect]
     Active Substance: MYCOPHENOLATE MOFETIL
     Indication: RENAL TRANSPLANT
     Dosage: UNK
     Route: 065

REACTIONS (14)
  - Cough [Unknown]
  - Lung opacity [Unknown]
  - Multiple organ dysfunction syndrome [Fatal]
  - COVID-19 [Unknown]
  - Tachypnoea [Unknown]
  - Hypotension [Unknown]
  - Metabolic acidosis [Unknown]
  - Dyspnoea [Unknown]
  - Cytokine storm [Unknown]
  - Oliguria [Unknown]
  - Pyrexia [Unknown]
  - Blood creatinine increased [Unknown]
  - Crepitations [Unknown]
  - Hypoxia [Unknown]

NARRATIVE: CASE EVENT DATE: 2020
